FAERS Safety Report 6922676-7 (Version None)
Quarter: 2010Q3

REPORT INFORMATION
  Report Type: 
  Country: None (occurrence: None)
  Receive Date: 20100813
  Receipt Date: 20100809
  Transmission Date: 20110219
  Serious: Yes (Life-Threatening, Other)
  Sender: FDA-Public Use
  Company Number: PHHY2010US52183

PATIENT
  Sex: Female

DRUGS (4)
  1. EXFORGE [Suspect]
  2. ATENOLOL [Concomitant]
  3. COD-LIVER OIL [Concomitant]
  4. ASCORBIC ACID [Concomitant]

REACTIONS (7)
  - ABDOMINAL DISCOMFORT [None]
  - ABDOMINAL PAIN UPPER [None]
  - DRUG INTOLERANCE [None]
  - FEELING ABNORMAL [None]
  - GASTROOESOPHAGEAL REFLUX DISEASE [None]
  - OEDEMA PERIPHERAL [None]
  - RENAL DISORDER [None]
